FAERS Safety Report 23604540 (Version 1)
Quarter: 2024Q1

REPORT INFORMATION
  Report Type: Spontaneous
  Country: CN (occurrence: CN)
  Receive Date: 20240307
  Receipt Date: 20240307
  Transmission Date: 20240409
  Serious: Yes (Other)
  Sender: FDA-Public Use
  Company Number: None

PATIENT
  Age: 2 Year
  Sex: Female
  Weight: 9.5 kg

DRUGS (6)
  1. IFOSFAMIDE [Suspect]
     Active Substance: IFOSFAMIDE
     Indication: Coccydynia
     Dosage: 0.55 G, ONE TIME IN ONE DAY, DILUTED WITH 100 ML OF 0.9% SODIUM CHLORIDE
     Route: 041
     Dates: start: 20240217, end: 20240218
  2. IFOSFAMIDE [Suspect]
     Active Substance: IFOSFAMIDE
     Indication: Bone cancer
  3. SODIUM CHLORIDE [Suspect]
     Active Substance: SODIUM CHLORIDE
     Indication: Medication dilution
     Dosage: 100 ML, ONE TIME IN ONE DAY, STRENGTH: 0.9%, DOSAGE FORM: INJECTION, USED TO DILUTE 0.55 G IFOSFAMID
     Route: 041
     Dates: start: 20240217, end: 20240218
  4. SODIUM CHLORIDE [Suspect]
     Active Substance: SODIUM CHLORIDE
     Dosage: 150 ML, ONE TIME IN ONE DAY, STRENGTH: 0.9%, DOSAGE FORM: INJECTION, USED TO DILUTE 65 MG PACLITAXEL
     Route: 041
     Dates: start: 20240216, end: 20240216
  5. PACLITAXEL [Suspect]
     Active Substance: PACLITAXEL
     Indication: Coccydynia
     Dosage: 65 MG, ONE TIME IN ONE DAY, DILUTED WITH 150 ML OF 0.9% SODIUM CHLORIDE
     Route: 041
     Dates: start: 20240216, end: 20240216
  6. PACLITAXEL [Suspect]
     Active Substance: PACLITAXEL
     Indication: Bone cancer

REACTIONS (5)
  - Infection [Unknown]
  - Pyrexia [Recovering/Resolving]
  - White blood cell count decreased [Unknown]
  - C-reactive protein increased [Unknown]
  - Upper respiratory tract congestion [Unknown]

NARRATIVE: CASE EVENT DATE: 20240217
